FAERS Safety Report 9365222 (Version 1)
Quarter: 2013Q2

REPORT INFORMATION
  Report Type: Spontaneous
  Country: US (occurrence: US)
  Receive Date: 20130624
  Receipt Date: 20130624
  Transmission Date: 20140414
  Serious: No
  Sender: FDA-Public Use
  Company Number: US-009507513-1306USA009442

PATIENT
  Age: 54 Year
  Sex: Male

DRUGS (2)
  1. ZETIA [Suspect]
     Indication: BLOOD TRIGLYCERIDES INCREASED
     Dosage: 10 MG, QD
     Route: 048
     Dates: start: 20130429, end: 20130506
  2. PRAVASTATIN SODIUM [Concomitant]

REACTIONS (2)
  - Pain in extremity [Recovered/Resolved]
  - Abasia [Recovered/Resolved]
